FAERS Safety Report 6546348-6 (Version None)
Quarter: 2010Q1

REPORT INFORMATION
  Report Type: 
  Country: None (occurrence: None)
  Receive Date: 20100119
  Receipt Date: 20100104
  Transmission Date: 20100710
  Serious: Yes (Hospitalization)
  Sender: FDA-Public Use
  Company Number: 2009AC000456

PATIENT
  Age: 73 Year
  Sex: Female

DRUGS (8)
  1. DIGOXIN [Suspect]
     Dosage: 0.125 MG;PO
     Route: 048
     Dates: start: 20030101
  2. METOPROLOL [Concomitant]
  3. GEMFIBROZIL [Concomitant]
  4. SINGULAIR [Concomitant]
  5. NITROGLYCERIN [Concomitant]
  6. PREMARIN [Concomitant]
  7. VERAPAMIL [Concomitant]
  8. SIMVASTATIN [Concomitant]

REACTIONS (5)
  - ECONOMIC PROBLEM [None]
  - INJURY [None]
  - MAMMOGRAM ABNORMAL [None]
  - PAIN IN EXTREMITY [None]
  - PALPITATIONS [None]
